FAERS Safety Report 7653391-2 (Version None)
Quarter: 2011Q3

REPORT INFORMATION
  Report Type: 
  Country: None (occurrence: None)
  Receive Date: 20110803
  Receipt Date: 20110728
  Transmission Date: 20111222
  Serious: Yes (Hospitalization, Other)
  Sender: FDA-Public Use
  Company Number: CA-PFIZER INC-2011172373

PATIENT
  Age: 55 Year
  Sex: Male

DRUGS (10)
  1. METFORMIN [Concomitant]
     Dosage: UNK
  2. RAMIPRIL [Concomitant]
     Dosage: UNK
  3. ENTROPHEN [Concomitant]
     Dosage: UNK
  4. BISOPROLOL [Concomitant]
     Dosage: UNK
  5. DILANTIN [Suspect]
     Dosage: 300 MG, 2X/DAY
     Dates: end: 20110524
  6. ATORVASTATIN [Concomitant]
     Dosage: UNK
  7. NICODERM [Concomitant]
     Dosage: UNK
     Route: 061
  8. AMLODIPINE [Concomitant]
     Dosage: UNK
  9. PLAVIX [Concomitant]
     Dosage: UNK
  10. TRAZODONE [Concomitant]
     Dosage: UNK

REACTIONS (2)
  - CEREBROVASCULAR ACCIDENT [None]
  - DRUG LEVEL INCREASED [None]
